FAERS Safety Report 11661670 (Version 2)
Quarter: 2018Q1

REPORT INFORMATION
  Report Type: Spontaneous
  Country: US (occurrence: US)
  Receive Date: 20151026
  Receipt Date: 20180216
  Transmission Date: 20180508
  Serious: No
  Sender: FDA-Public Use
  Company Number: US-PFIZER INC-2015348414

PATIENT
  Age: 53 Year
  Sex: Female
  Weight: 95 kg

DRUGS (16)
  1. FIORICET [Concomitant]
     Active Substance: ACETAMINOPHEN\BUTALBITAL\CAFFEINE
     Dosage: UNK
  2. FENOFIBRATE. [Concomitant]
     Active Substance: FENOFIBRATE
     Dosage: 54 MG, UNK
  3. MS CONTIN [Concomitant]
     Active Substance: MORPHINE SULFATE
     Indication: PAIN
     Dosage: 60 MG,  UNK (EVERY 8 HOURS)
  4. OXYCODONE [Concomitant]
     Active Substance: OXYCODONE
     Indication: PAIN
     Dosage: 15 MG, 4X/DAY (1 TABLET EVERY 6 HOURS)
  5. OMEPRAZOLE. [Concomitant]
     Active Substance: OMEPRAZOLE
     Dosage: 40 MG, UNK
  6. OXYCODONE [Concomitant]
     Active Substance: OXYCODONE
     Dosage: 15 MG, UNK
  7. LYRICA [Suspect]
     Active Substance: PREGABALIN
     Indication: FIBROMYALGIA
  8. MS CONTIN [Concomitant]
     Active Substance: MORPHINE SULFATE
     Dosage: 30 UNK, UNK
  9. ATORVASTATIN [Concomitant]
     Active Substance: ATORVASTATIN
     Indication: BLOOD CHOLESTEROL ABNORMAL
     Dosage: UNK, 1X/DAY
  10. VALIUM [Concomitant]
     Active Substance: DIAZEPAM
     Dosage: 5 MG, UNK
  11. LYRICA [Suspect]
     Active Substance: PREGABALIN
     Indication: BACK DISORDER
     Dosage: 75 MG, 2X/DAY (ONE HUNDRED EIGHTY) 90 DAY SUPPLY
     Route: 048
  12. DIAZEPAM. [Concomitant]
     Active Substance: DIAZEPAM
     Indication: MUSCLE SPASMS
     Dosage: 5 MG, AS NEEDED
  13. VERAPAMIL [Concomitant]
     Active Substance: VERAPAMIL HYDROCHLORIDE
     Indication: MIGRAINE
     Dosage: 180 MG, 2X/DAY
  14. LOSARTAN. [Concomitant]
     Active Substance: LOSARTAN
     Indication: BLOOD PRESSURE ABNORMAL
     Dosage: 100 MG, 1X/DAY
  15. RELPAX [Concomitant]
     Active Substance: ELETRIPTAN HYDROBROMIDE
     Indication: HEADACHE
     Dosage: UNK, AS NEEDED
  16. ESTRADIOL. [Concomitant]
     Active Substance: ESTRADIOL
     Dosage: 1 MG, UNK

REACTIONS (1)
  - Drug effect incomplete [Unknown]
